FAERS Safety Report 23937330 (Version 1)
Quarter: 2024Q2

REPORT INFORMATION
  Report Type: Spontaneous
  Country: US (occurrence: US)
  Receive Date: 20240604
  Receipt Date: 20240604
  Transmission Date: 20240716
  Serious: No
  Sender: FDA-Public Use
  Company Number: US-LEX-000294

PATIENT
  Age: 61 Year
  Sex: Male
  Weight: 87.7 kg

DRUGS (1)
  1. INPEFA [Suspect]
     Active Substance: SOTAGLIFLOZIN
     Indication: Product used for unknown indication
     Route: 048
     Dates: start: 20240509, end: 20240515

REACTIONS (2)
  - Headache [Unknown]
  - Blood pressure increased [Unknown]

NARRATIVE: CASE EVENT DATE: 20240509
